FAERS Safety Report 7260794-7 (Version None)
Quarter: 2011Q1

REPORT INFORMATION
  Report Type: 
  Country: None (occurrence: None)
  Receive Date: 20110130
  Receipt Date: 20101111
  Transmission Date: 20110831
  Serious: No
  Sender: FDA-Public Use
  Company Number: US-ABBOTT-10P-163-0684890-00

PATIENT
  Age: 19 Year
  Sex: Female

DRUGS (4)
  1. TRI-SPRINTEC [Concomitant]
     Indication: CONTRACEPTION
  2. LIALDA [Concomitant]
     Indication: CROHN'S DISEASE
  3. HUMIRA [Suspect]
     Indication: CROHN'S DISEASE
     Dates: start: 20100923
  4. ENTOCORT EC [Concomitant]
     Indication: CROHN'S DISEASE
     Dosage: 3-30MG PILLS IN 1 DAY

REACTIONS (3)
  - POLYMENORRHOEA [None]
  - MENSTRUATION IRREGULAR [None]
  - OLIGOMENORRHOEA [None]
